FAERS Safety Report 4370767-X (Version None)
Quarter: 2004Q2

REPORT INFORMATION
  Report Type: 
  Country: None (occurrence: None)
  Receive Date: 20040603
  Receipt Date: 20040603
  Transmission Date: 20050107
  Serious: Yes (Other)
  Sender: FDA-Public Use
  Company Number: None

PATIENT
  Age: 67 Year
  Sex: Female
  Weight: 121.564 kg

DRUGS (13)
  1. XENICAL [Suspect]
     Indication: OBESITY
     Dosage: 240 MG
     Route: 048
     Dates: start: 20040507, end: 20040521
  2. RELAFEN [Concomitant]
  3. REGLAN [Concomitant]
  4. ZYRTEC [Concomitant]
  5. LORAZEPAM [Concomitant]
  6. FLUNAZEPAM [Concomitant]
  7. DARVAN [Concomitant]
  8. ZOLOFT [Concomitant]
  9. PREMARIN [Concomitant]
  10. TYLENOL PM [Concomitant]
  11. FUROSEMIDE [Concomitant]
  12. KCL TAB [Concomitant]
  13. ACIPHEX [Concomitant]

REACTIONS (1)
  - LETHARGY [None]
